FAERS Safety Report 11598508 (Version 1)
Quarter: 2015Q3

REPORT INFORMATION
  Report Type: Spontaneous
  Country: US (occurrence: US)
  Receive Date: 20150916
  Receipt Date: 20150916
  Transmission Date: 20151125
  Serious: No
  Sender: FDA-Public Use
  Company Number: US-ELI_LILLY_AND_COMPANY-US200712003107

PATIENT
  Age: 77 Year
  Sex: Female

DRUGS (4)
  1. FORTEO [Suspect]
     Active Substance: TERIPARATIDE
     Indication: CRUSH INJURY
     Route: 058
     Dates: start: 20071121
  2. FORTEO [Suspect]
     Active Substance: TERIPARATIDE
     Dates: start: 200711
  3. FORTEO [Suspect]
     Active Substance: TERIPARATIDE
     Dates: start: 200711
  4. FORTEO [Suspect]
     Active Substance: TERIPARATIDE

REACTIONS (6)
  - Arthritis [Unknown]
  - Arthralgia [Not Recovered/Not Resolved]
  - Myalgia [Not Recovered/Not Resolved]
  - Back pain [Not Recovered/Not Resolved]
  - Body height decreased [Not Recovered/Not Resolved]
  - Spinal column stenosis [Unknown]

NARRATIVE: CASE EVENT DATE: 200711
